FAERS Safety Report 7368435-5 (Version None)
Quarter: 2011Q1

REPORT INFORMATION
  Report Type: 
  Country: None (occurrence: None)
  Receive Date: 20110317
  Receipt Date: 20110317
  Transmission Date: 20110831
  Serious: Yes (Life-Threatening)
  Sender: FDA-Public Use
  Company Number: None

PATIENT
  Sex: Female
  Weight: 118.3888 kg

DRUGS (2)
  1. METHOTREXATE [Suspect]
     Indication: RHEUMATOID ARTHRITIS
     Dosage: WEEKLY
     Dates: start: 19990101, end: 20101101
  2. ENBREL [Suspect]
     Indication: RHEUMATOID ARTHRITIS
     Dosage: WEEKLY SQ
     Route: 058
     Dates: start: 20050101, end: 20100901

REACTIONS (1)
  - ACUTE MYELOID LEUKAEMIA [None]
